FAERS Safety Report 10210944 (Version 1)
Quarter: 2014Q2

REPORT INFORMATION
  Report Type: Spontaneous
  Country: US (occurrence: None)
  Receive Date: 20140528
  Receipt Date: 20140528
  Transmission Date: 20141212
  Serious: Yes (Hospitalization, Other)
  Sender: FDA-Public Use
  Company Number: 2014HINLIT0453

PATIENT
  Age: 33 Year
  Sex: Female

DRUGS (5)
  1. LEVETIRACETAM (LEVETIRACETAM) UNKNOWN [Suspect]
     Indication: CONVULSION
  2. METHADONE (METHADONE) [Concomitant]
  3. HALOPERIDOL (HALOPERIDOL) (HALOPERIDOL) [Concomitant]
  4. LORAZEPAM (LORAZEPAM) [Concomitant]
  5. DIPHENHYDRAMINE (DIPHENHYDRAMINE) [Concomitant]

REACTIONS (8)
  - Substance-induced psychotic disorder [None]
  - Convulsion [None]
  - Insomnia [None]
  - Hallucination, auditory [None]
  - Physical assault [None]
  - Maternal exposure during pregnancy [None]
  - Fatigue [None]
  - Treatment noncompliance [None]
